FAERS Safety Report 11911157 (Version 1)
Quarter: 2016Q1

REPORT INFORMATION
  Report Type: Spontaneous
  Country: US (occurrence: US)
  Receive Date: 20160112
  Receipt Date: 20160112
  Transmission Date: 20160526
  Serious: No
  Sender: FDA-Public Use
  Company Number: US-TARO-2015TAR00292

PATIENT
  Sex: Male
  Weight: 93.88 kg

DRUGS (3)
  1. PROTOPIC [Suspect]
     Active Substance: TACROLIMUS
     Indication: SEBORRHOEIC DERMATITIS
     Dosage: UNK DOSAGE UNITS, 1X/DAY
     Route: 061
     Dates: end: 201503
  2. KETOCONAZOLE CREAM 2% [Suspect]
     Active Substance: KETOCONAZOLE
     Indication: SEBORRHOEIC DERMATITIS
     Dosage: 1 DOSAGE UNITS, 1X/DAY
     Route: 061
     Dates: end: 201503
  3. UNKNOWN PRODUCT CONTAINING POTASSIUM FOR KIDNEY STONES [Concomitant]

REACTIONS (8)
  - Nausea [Recovered/Resolved]
  - Application site irritation [Unknown]
  - Skin tightness [Unknown]
  - Application site warmth [Recovered/Resolved]
  - Skin exfoliation [Unknown]
  - Erythema [Recovered/Resolved]
  - Application site dryness [Not Recovered/Not Resolved]
  - Pruritus [Unknown]
